FAERS Safety Report 4304425-4 (Version None)
Quarter: 2004Q1

REPORT INFORMATION
  Report Type: 
  Country: None (occurrence: None)
  Receive Date: 20040224
  Receipt Date: 20031126
  Transmission Date: 20041129
  Serious: Yes (Other)
  Sender: FDA-Public Use
  Company Number: 200413123BWH

PATIENT
  Age: 26 Year
  Sex: Male

DRUGS (4)
  1. LEVITRA [Suspect]
     Dosage: 10 MG, TOTAL DAILY, ORAL
     Route: 048
  2. ZOVIRAX [Concomitant]
  3. KLONOPIN [Concomitant]
  4. ALBUTEROL [Concomitant]

REACTIONS (2)
  - CHEST DISCOMFORT [None]
  - HEART RATE IRREGULAR [None]
